FAERS Safety Report 5980615-X (Version None)
Quarter: 2008Q4

REPORT INFORMATION
  Report Type: 
  Country: None (occurrence: None)
  Receive Date: 20081205
  Receipt Date: 20080214
  Transmission Date: 20090506
  Serious: No
  Sender: FDA-Public Use
  Company Number: A0709514A

PATIENT
  Age: 59 Year
  Sex: Female

DRUGS (1)
  1. COMMIT [Suspect]
     Dates: start: 20080211, end: 20080212

REACTIONS (6)
  - ABDOMINAL PAIN UPPER [None]
  - DIARRHOEA [None]
  - INSOMNIA [None]
  - NAUSEA [None]
  - RETCHING [None]
  - VOMITING [None]
